FAERS Safety Report 7205804-8 (Version None)
Quarter: 2010Q4

REPORT INFORMATION
  Report Type: 
  Country: None (occurrence: None)
  Receive Date: 20101231
  Receipt Date: 20101228
  Transmission Date: 20110411
  Serious: Yes (Death)
  Sender: FDA-Public Use
  Company Number: DE-MERCK-1011DEU00133

PATIENT

DRUGS (1)
  1. CANCIDAS [Suspect]
     Indication: CANDIDIASIS
     Route: 042

REACTIONS (2)
  - DRUG INEFFECTIVE [None]
  - MULTI-ORGAN FAILURE [None]
